FAERS Safety Report 24168625 (Version 1)
Quarter: 2024Q3

REPORT INFORMATION
  Report Type: Spontaneous
  Country: US (occurrence: US)
  Receive Date: 20240802
  Receipt Date: 20240802
  Transmission Date: 20241016
  Serious: Yes (Other)
  Sender: PERRIGO
  Company Number: US-PERRIGO-24US007258

PATIENT
  Age: 21 Year
  Sex: Female
  Weight: 90.703 kg

DRUGS (1)
  1. OPILL [Suspect]
     Active Substance: NORGESTREL
     Indication: Contraception
     Dosage: 0.075 MG, QD
     Route: 048
     Dates: start: 202405, end: 20240624

REACTIONS (2)
  - Central serous chorioretinopathy [Recovering/Resolving]
  - Vision blurred [Recovering/Resolving]

NARRATIVE: CASE EVENT DATE: 20240601
